FAERS Safety Report 8893690 (Version 5)
Quarter: 2013Q1

REPORT INFORMATION
  Report Type: Spontaneous
  Country: JP (occurrence: JP)
  Receive Date: 20121108
  Receipt Date: 20130204
  Transmission Date: 20140127
  Serious: No
  Sender: FDA-Public Use
  Company Number: JP-JNJFOC-20121101291

PATIENT
  Age: 6 Decade
  Sex: Male

DRUGS (4)
  1. LOPEMIN [Suspect]
     Indication: DIARRHOEA
     Route: 048
     Dates: start: 20121030, end: 20121101
  2. CONIEL [Suspect]
     Indication: HYPERTENSION
     Route: 048
     Dates: start: 20121030, end: 20121101
  3. URSO [Concomitant]
     Indication: CHRONIC HEPATITIS C
     Route: 048
     Dates: start: 20121030, end: 20121101
  4. MULTIPLE CONCOMITANT DRUGS [Concomitant]
     Route: 065

REACTIONS (1)
  - Retinal vein occlusion [Recovering/Resolving]
